FAERS Safety Report 19443716 (Version 4)
Quarter: 2023Q4

REPORT INFORMATION
  Report Type: Report from Study
  Country: KR (occurrence: KR)
  Receive Date: 20210621
  Receipt Date: 20231006
  Transmission Date: 20240109
  Serious: Yes (Hospitalization, Other)
  Sender: FDA-Public Use
  Company Number: KR-VIIV HEALTHCARE LIMITED-KR2021GSK134089

PATIENT
  Age: 76 Year
  Sex: Male
  Weight: 47 kg

DRUGS (6)
  1. DOLUTEGRAVIR SODIUM\LAMIVUDINE [Suspect]
     Active Substance: DOLUTEGRAVIR SODIUM\LAMIVUDINE
     Indication: HIV infection
     Dosage: 1 DF, QD
     Route: 048
     Dates: start: 20201029
  2. STILNOX CR TABLET [Concomitant]
     Indication: Insomnia
     Dosage: 1 DF, QD
     Route: 048
     Dates: start: 20200130
  3. LIPIDIL SUPRA TABLET [Concomitant]
     Indication: Hyperlipidaemia
     Dosage: 1 DF, QD
     Route: 048
     Dates: start: 20130320
  4. BRONCHO-VAXOM [Concomitant]
     Indication: Chronic obstructive pulmonary disease
     Dosage: 1 CAPSULE, QD
     Route: 048
     Dates: start: 20131015
  5. ERDOSTEINE [Concomitant]
     Active Substance: ERDOSTEINE
     Indication: Chronic obstructive pulmonary disease
     Dosage: 1 CAPSULE, BID
     Route: 048
     Dates: start: 20131015
  6. ASIMA TABLET [Concomitant]
     Indication: Chronic obstructive pulmonary disease
     Dosage: 1 TABLET, BID
     Route: 048
     Dates: start: 20131015

REACTIONS (1)
  - Encephalitis viral [Recovered/Resolved with Sequelae]

NARRATIVE: CASE EVENT DATE: 20210403
